FAERS Safety Report 10191064 (Version 1)
Quarter: 2014Q2

REPORT INFORMATION
  Report Type: Spontaneous
  Country: US (occurrence: None)
  Receive Date: 20140521
  Receipt Date: 20140521
  Transmission Date: 20141212
  Serious: Yes (Life-Threatening, Hospitalization)
  Sender: FDA-Public Use
  Company Number: None

PATIENT
  Age: 70 Year
  Sex: Female
  Weight: 53.7 kg

DRUGS (4)
  1. SITAGLIPTIN 50 MG MERCK [Suspect]
     Indication: TYPE 2 DIABETES MELLITUS
     Dosage: 1 TABLET QD ORAL
     Route: 048
     Dates: start: 20140228, end: 20140415
  2. AMLODIPINE [Concomitant]
  3. CYCLOBENZAPRINE [Concomitant]
  4. ZETIA [Concomitant]

REACTIONS (1)
  - Dermatitis exfoliative [None]
